FAERS Safety Report 4428343-6 (Version None)
Quarter: 2004Q3

REPORT INFORMATION
  Report Type: 
  Country: None (occurrence: None)
  Receive Date: 20040818
  Receipt Date: 20040806
  Transmission Date: 20050211
  Serious: Yes (Hospitalization)
  Sender: FDA-Public Use
  Company Number: US-JNJFOC-20040602999

PATIENT
  Sex: Male
  Weight: 103.42 kg

DRUGS (11)
  1. REMICADE [Suspect]
     Route: 042
  2. REMICADE [Suspect]
     Indication: RHEUMATOID ARTHRITIS
     Route: 042
  3. VICODIN ES [Concomitant]
     Route: 049
  4. VICODIN ES [Concomitant]
     Dosage: 1-2 TWICE AS NEEDED
     Route: 049
  5. TYLENOL W/ CODEINE NO. 3 [Concomitant]
     Route: 049
  6. TYLENOL W/ CODEINE NO. 3 [Concomitant]
     Dosage: 1-2 TWICE A DAY AS NEEDED
     Route: 049
  7. METHOTREXATE [Concomitant]
     Route: 049
  8. VIOXX [Concomitant]
  9. BUSPAR [Concomitant]
  10. ZOLOFT [Concomitant]
  11. SEROQUEL [Concomitant]

REACTIONS (12)
  - BACK PAIN [None]
  - CHEST PAIN [None]
  - FLUSHING [None]
  - HYPERSENSITIVITY [None]
  - INFUSION RELATED REACTION [None]
  - MUSCLE SPASMS [None]
  - RASH ERYTHEMATOUS [None]
  - RESPIRATORY DISTRESS [None]
  - RESTLESSNESS [None]
  - TACHYCARDIA [None]
  - URTICARIA [None]
  - URTICARIA GENERALISED [None]
